FAERS Safety Report 9602988 (Version 1)
Quarter: 2013Q4

REPORT INFORMATION
  Report Type: Spontaneous
  Country: DE (occurrence: DE)
  Receive Date: 20131007
  Receipt Date: 20131007
  Transmission Date: 20140711
  Serious: Yes (Other)
  Sender: FDA-Public Use
  Company Number: DE-ROCHE-1284548

PATIENT
  Age: 73 Year
  Sex: Female
  Weight: 75 kg

DRUGS (8)
  1. PERJETA [Suspect]
     Indication: BREAST CANCER
     Route: 042
     Dates: start: 20130508
  2. PERJETA [Suspect]
     Dosage: START DATE ESTIMATED FROM FREQUENCY.
     Route: 042
     Dates: start: 20130529
  3. HERCEPTIN [Suspect]
     Indication: BREAST CANCER
     Route: 042
     Dates: start: 20130508
  4. TAXOTERE [Suspect]
     Indication: BREAST CANCER
     Route: 042
     Dates: start: 20130508
  5. EMEND [Concomitant]
     Dosage: DOSE: 125/80/80 MG
     Route: 065
  6. ALOXI [Concomitant]
     Route: 065
  7. FORTECORTIN [Concomitant]
  8. MCP [Concomitant]
     Route: 065

REACTIONS (3)
  - Mucous membrane disorder [Recovering/Resolving]
  - Influenza like illness [Recovering/Resolving]
  - Arthralgia [Recovering/Resolving]
